FAERS Safety Report 7090759-X (Version None)
Quarter: 2010Q4

REPORT INFORMATION
  Report Type: 
  Country: None (occurrence: None)
  Receive Date: 20101012
  Receipt Date: 20100203
  Transmission Date: 20110411
  Serious: Yes (Other)
  Sender: FDA-Public Use
  Company Number: 1000011656

PATIENT
  Age: 27 Year
  Sex: Male

DRUGS (5)
  1. LEXAPRO [Suspect]
     Indication: ANXIETY
     Dosage: 10 MG (10 MG, 1 IN 1 D), ORAL; 10 MG (10 MG, 1 IN 1 D), ORAL
     Route: 048
     Dates: start: 20070101, end: 20100122
  2. LEXAPRO [Suspect]
     Indication: ANXIETY
     Dosage: 10 MG (10 MG, 1 IN 1 D), ORAL; 10 MG (10 MG, 1 IN 1 D), ORAL
     Route: 048
     Dates: start: 20100201
  3. ADDERALL 10 [Suspect]
     Indication: DRUG WITHDRAWAL SYNDROME
     Dosage: 10 MG (10 MG, 1 IN 1 D), ORAL; 10 MG (10 MG, 1 IN 1 D), ORAL; 10 MG (10 MG, 1 IN 1 D), ORAL
     Route: 048
     Dates: start: 20090101, end: 20090101
  4. ADDERALL 10 [Suspect]
     Indication: DRUG WITHDRAWAL SYNDROME
     Dosage: 10 MG (10 MG, 1 IN 1 D), ORAL; 10 MG (10 MG, 1 IN 1 D), ORAL; 10 MG (10 MG, 1 IN 1 D), ORAL
     Route: 048
     Dates: start: 20090801, end: 20090101
  5. ADDERALL 10 [Suspect]
     Indication: DRUG WITHDRAWAL SYNDROME
     Dosage: 10 MG (10 MG, 1 IN 1 D), ORAL; 10 MG (10 MG, 1 IN 1 D), ORAL; 10 MG (10 MG, 1 IN 1 D), ORAL
     Route: 048
     Dates: start: 20090101

REACTIONS (2)
  - FATIGUE [None]
  - SEROTONIN SYNDROME [None]
